FAERS Safety Report 11343508 (Version 4)
Quarter: 2015Q4

REPORT INFORMATION
  Report Type: Report from Study
  Country: US (occurrence: US)
  Receive Date: 20150806
  Receipt Date: 20151019
  Transmission Date: 20160304
  Serious: Yes (Hospitalization)
  Sender: FDA-Public Use
  Company Number: US-ALEXION-A201502897

PATIENT
  Sex: Female

DRUGS (1)
  1. SOLIRIS [Suspect]
     Active Substance: ECULIZUMAB
     Indication: PRODUCT USED FOR UNKNOWN INDICATION
     Dosage: UNK
     Route: 042

REACTIONS (6)
  - Chromaturia [Unknown]
  - Unevaluable event [Unknown]
  - Dysphagia [Unknown]
  - Haemolysis [Unknown]
  - Oesophageal spasm [Unknown]
  - Thrombosis [Unknown]

NARRATIVE: CASE EVENT DATE: 20150728
